FAERS Safety Report 9928046 (Version 1)
Quarter: 2014Q1

REPORT INFORMATION
  Report Type: Spontaneous
  Country: US (occurrence: None)
  Receive Date: 20140226
  Receipt Date: 20140226
  Transmission Date: 20141002
  Serious: Yes (Hospitalization)
  Sender: FDA-Public Use
  Company Number: None

PATIENT
  Age: 60 Year
  Sex: Female

DRUGS (1)
  1. RIBAVIRIN [Suspect]
     Indication: HEPATITIS C
     Dosage: 3 TABLETS AM 2 TAB PM ?DAILY ?ORAL
     Route: 048
     Dates: start: 20140206, end: 20140206

REACTIONS (3)
  - Contusion [None]
  - Mouth haemorrhage [None]
  - Platelet count decreased [None]
